FAERS Safety Report 9178086 (Version 2)
Quarter: 2013Q2

REPORT INFORMATION
  Report Type: Spontaneous
  Country: US (occurrence: US)
  Receive Date: 20130321
  Receipt Date: 20130411
  Transmission Date: 20140414
  Serious: Yes (Other)
  Sender: FDA-Public Use
  Company Number: PHEH2013US006428

PATIENT
  Sex: Female

DRUGS (3)
  1. DIOVAN [Suspect]
     Dosage: UNK UKN, UNK
     Dates: start: 1997
  2. JANUMET [Concomitant]
     Dosage: UNK UKN, UNK
  3. INSULIN [Concomitant]
     Dosage: UNK UKN, UNK

REACTIONS (1)
  - Myocardial infarction [Unknown]
